FAERS Safety Report 23281194 (Version 1)
Quarter: 2023Q4

REPORT INFORMATION
  Report Type: Spontaneous
  Country: AR (occurrence: AR)
  Receive Date: 20231211
  Receipt Date: 20231211
  Transmission Date: 20240109
  Serious: Yes (Death, Other)
  Sender: FDA-Public Use
  Company Number: AR-AstraZeneca-CH-00525051A

PATIENT
  Sex: Female
  Weight: 87 kg

DRUGS (1)
  1. SOLIRIS [Suspect]
     Active Substance: ECULIZUMAB
     Indication: Atypical haemolytic uraemic syndrome
     Dosage: 900 MILLIGRAM, Q2W
     Route: 042
     Dates: start: 20210701

REACTIONS (1)
  - Death [Fatal]
